FAERS Safety Report 4738211-8 (Version None)
Quarter: 2005Q3

REPORT INFORMATION
  Report Type: 
  Country: None (occurrence: None)
  Receive Date: 20050729
  Receipt Date: 20050426
  Transmission Date: 20060218
  Serious: Yes (Life-Threatening)
  Sender: FDA-Public Use
  Company Number: 603463

PATIENT
  Sex: Female

DRUGS (2)
  1. ARALAST [Suspect]
     Dosage: IV; EVERY WEEK IV
     Route: 042
     Dates: end: 20050421
  2. ARALAST [Suspect]
     Dosage: IV; EVERY WEEK IV
     Route: 042
     Dates: start: 20050701

REACTIONS (2)
  - INFUSION SITE PRURITUS [None]
  - SWOLLEN TONGUE [None]
